FAERS Safety Report 4983021-X (Version None)
Quarter: 2006Q2

REPORT INFORMATION
  Report Type: 
  Country: None (occurrence: None)
  Receive Date: 20060420
  Receipt Date: 20060407
  Transmission Date: 20061013
  Serious: Yes (Other)
  Sender: FDA-Public Use
  Company Number: 2006049194

PATIENT
  Age: 82 Year
  Sex: Male
  Weight: 124.7392 kg

DRUGS (9)
  1. NEURONTIN [Suspect]
     Indication: NEURALGIA
     Dosage: 100 MG (100 MG, 1 IN 1 D)
     Dates: start: 20060224
  2. TENORMIN [Concomitant]
  3. MAXZIDE [Concomitant]
  4. COLESTID [Concomitant]
  5. AVODART [Concomitant]
  6. FLOMAX [Concomitant]
  7. NORVASC [Concomitant]
  8. PROTONIX [Concomitant]
  9. LIDODERM PATCH (LIDOCAINE HYDROCHLORIDE) [Concomitant]

REACTIONS (6)
  - CONDITION AGGRAVATED [None]
  - DIZZINESS [None]
  - DRUG INEFFECTIVE [None]
  - FALL [None]
  - GLUCOSE TOLERANCE IMPAIRED [None]
  - OEDEMA PERIPHERAL [None]
